FAERS Safety Report 5111338-7 (Version None)
Quarter: 2006Q3

REPORT INFORMATION
  Report Type: 
  Country: None (occurrence: None)
  Receive Date: 20060922
  Receipt Date: 20060113
  Transmission Date: 20061208
  Serious: No
  Sender: FDA-Public Use
  Company Number: US-GLAXOSMITHKLINE-A0589175A

PATIENT
  Age: 83 Year
  Sex: Female

DRUGS (4)
  1. ABREVA [Suspect]
     Route: 061
     Dates: start: 20051201, end: 20060112
  2. FLONASE [Concomitant]
     Route: 045
  3. POTASSIUM [Concomitant]
  4. THYROID TAB [Concomitant]

REACTIONS (11)
  - ANOREXIA [None]
  - ASTHENIA [None]
  - BURNING SENSATION [None]
  - CHEILITIS [None]
  - CHILLS [None]
  - DIZZINESS [None]
  - FEELING ABNORMAL [None]
  - HYPERSENSITIVITY [None]
  - NAUSEA [None]
  - THERMAL BURN [None]
  - TREMOR [None]
